FAERS Safety Report 16935374 (Version 1)
Quarter: 2019Q4

REPORT INFORMATION
  Report Type: Spontaneous
  Country: DE (occurrence: DE)
  Receive Date: 20191018
  Receipt Date: 20191018
  Transmission Date: 20200122
  Serious: Yes (Other)
  Sender: FDA-Public Use
  Company Number: DE-PFIZER INC-2019442586

PATIENT
  Age: 82 Year
  Sex: Female

DRUGS (1)
  1. LANTAREL [Suspect]
     Active Substance: METHOTREXATE SODIUM
     Indication: RHEUMATIC DISORDER
     Dosage: 10 MG, WEEKLY
     Dates: start: 201902

REACTIONS (1)
  - Ocular vascular disorder [Unknown]

NARRATIVE: CASE EVENT DATE: 2019
